FAERS Safety Report 12657141 (Version 2)
Quarter: 2016Q3

REPORT INFORMATION
  Report Type: Spontaneous
  Country: US (occurrence: US)
  Receive Date: 20160816
  Receipt Date: 20160816
  Transmission Date: 20161109
  Serious: No
  Sender: FDA-Public Use
  Company Number: US-ENDO PHARMACEUTICALS INC.-2016-003854

PATIENT
  Sex: Female
  Weight: 54.48 kg

DRUGS (3)
  1. SUMAVEL DOSEPRO [Suspect]
     Active Substance: SUMATRIPTAN SUCCINATE
     Indication: MIGRAINE
     Route: 058
  2. PROTRIPTYLINE [Concomitant]
     Active Substance: PROTRIPTYLINE
     Indication: MIGRAINE PROPHYLAXIS
  3. CAFFEINE W/ISOMETHEPTENE/PARACETAMOL [Concomitant]
     Indication: HEADACHE

REACTIONS (2)
  - Device malfunction [Unknown]
  - Visual impairment [Unknown]
